FAERS Safety Report 18270101 (Version 1)
Quarter: 2020Q3

REPORT INFORMATION
  Report Type: Spontaneous
  Country: GB (occurrence: US)
  Receive Date: 20200916
  Receipt Date: 20200916
  Transmission Date: 20201103
  Serious: Yes (Death, Other)
  Sender: FDA-Public Use
  Company Number: US-ASTELLAS-2020US032147

PATIENT
  Age: 55 Year
  Sex: Male

DRUGS (1)
  1. TARCEVA [Suspect]
     Active Substance: ERLOTINIB HYDROCHLORIDE
     Indication: PRODUCT USED FOR UNKNOWN INDICATION
     Route: 048
     Dates: start: 202003, end: 202003

REACTIONS (1)
  - Death [Fatal]

NARRATIVE: CASE EVENT DATE: 20200905
